FAERS Safety Report 9437746 (Version 2)
Quarter: 2013Q3

REPORT INFORMATION
  Report Type: Spontaneous
  Country: GB (occurrence: None)
  Receive Date: 20130731
  Receipt Date: 20130806
  Transmission Date: 20140515
  Serious: Yes (Life-Threatening, Hospitalization)
  Sender: FDA-Public Use
  Company Number: THQ2013A05538

PATIENT
  Age: 15 Year
  Sex: Male

DRUGS (14)
  1. LANSOPRAZOLE [Suspect]
     Indication: DYSPEPSIA
     Route: 048
     Dates: start: 20130525, end: 20130621
  2. METHOTREXATE SODIUM [Suspect]
     Indication: ANAPLASTIC LARGE-CELL LYMPHOMA
     Route: 042
     Dates: start: 20130619, end: 20130619
  3. PIPERACILLIN/TAZOBACTAM (PIPERACILLIN SODIUM , TAZOBACTAM SODIUM) [Concomitant]
  4. GENTAMICIN [Concomitant]
  5. MESNA [Concomitant]
  6. IFOSFAMIDE [Concomitant]
  7. CYTARABINE [Concomitant]
  8. DEXAMETHASONE [Concomitant]
  9. CALCIUM FOLINATE [Concomitant]
  10. ETOPOSIDE [Concomitant]
  11. CODEINE (CODEINE PHOSPHATE) [Concomitant]
  12. ONDANSETRON [Concomitant]
  13. LEVOMEPROMAZINE [Concomitant]
  14. PARACETAMOL [Concomitant]

REACTIONS (7)
  - Renal failure acute [None]
  - Tubulointerstitial nephritis [None]
  - White blood cell count increased [None]
  - Abdominal pain [None]
  - Drug level increased [None]
  - Pancreatitis [None]
  - Amylase increased [None]
